FAERS Safety Report 14961310 (Version 1)
Quarter: 2018Q2

REPORT INFORMATION
  Report Type: Spontaneous
  Country: US (occurrence: US)
  Receive Date: 20180601
  Receipt Date: 20180601
  Transmission Date: 20180711
  Serious: Yes (Life-Threatening, Hospitalization, Other)
  Sender: FDA-Public Use
  Company Number: US-ALK-ABELLO A/S-2018AA001467

PATIENT

DRUGS (37)
  1. TAE BULK 1156 JUNIPERUS VIRGINIANA [Suspect]
     Active Substance: JUNIPERUS VIRGINIANA POLLEN
     Dosage: UNK
     Dates: start: 200705
  2. TAE BULK 322 CHENOPODIUM ALBUM [Suspect]
     Active Substance: CHENOPODIUM ALBUM POLLEN
     Dosage: UNK
     Dates: start: 200705
  3. TAE BULK 366 IVA CILIATA [Suspect]
     Active Substance: IVA ANNUA POLLEN
     Dosage: UNK
     Dates: start: 200705
  4. TAE BULK 1175 SALIX NIGRA [Suspect]
     Active Substance: SALIX NIGRA POLLEN
     Dosage: UNK
     Dates: start: 200705
  5. STAE BULK 302 AMBROSIA ARTEMISIIFOLIA [Suspect]
     Active Substance: AMBROSIA ARTEMISIIFOLIA POLLEN
     Dosage: UNK
     Dates: start: 200705
  6. TAE BULK 364 XANTHIUM COMMUNE [Suspect]
     Active Substance: XANTHIUM STRUMARIUM POLLEN
     Dosage: UNK
     Dates: start: 200705
  7. TAE BULK 362 AMARANTHUS RETROFLEXUS [Suspect]
     Active Substance: AMARANTHUS RETROFLEXUS POLLEN
     Dosage: UNK
     Dates: start: 200705
  8. CLARITIN [Concomitant]
     Active Substance: LORATADINE
  9. SINGULAIR [Concomitant]
     Active Substance: MONTELUKAST SODIUM
  10. TAE BULK 156 (ULMUS AMERICANA) [Suspect]
     Active Substance: ULMUS AMERICANA POLLEN
     Dosage: UNK
     Dates: start: 200705
  11. TAE BULK 1166 PLATANUS OCCIDENTALIS [Suspect]
     Active Substance: PLATANUS OCCIDENTALIS POLLEN
     Dosage: UNK
     Dates: start: 200705
  12. TAE BULK 1161 MORUS RUBRA [Suspect]
     Active Substance: MORUS RUBRA POLLEN
     Dosage: UNK
     Dates: start: 200705
  13. STAE BULK 218 (FESTUCA PRATENSIS) [Suspect]
     Active Substance: FESTUCA PRATENSIS POLLEN
     Dosage: UNK
     Dates: start: 200705
  14. TAE BULK 553 [Suspect]
     Active Substance: ALLERGENIC EXTRACTS
     Dosage: UNK
     Dates: start: 200705
  15. ALBUTEROL                          /00139501/ [Concomitant]
     Active Substance: ALBUTEROL
  16. TAE BULK 156 (ULMUS AMERICANA) [Suspect]
     Active Substance: ULMUS AMERICANA POLLEN
     Dosage: UNK
  17. TAE BULK 1150 (FRAXINUS VELUTINA) [Suspect]
     Active Substance: FRAXINUS VELUTINA POLLEN
     Dosage: UNK
     Dates: start: 200705
  18. TAE BULK 166 (PROSOPIS JULIFLORA POLLEN) [Suspect]
     Active Substance: PROSOPIS JULIFLORA POLLEN
     Dosage: UNK
     Dates: start: 200705
  19. TAE BULK 363 (AMBROSIA ACANTHICARPA) [Suspect]
     Active Substance: AMBROSIA ACANTHICARPA POLLEN
     Dosage: UNK
     Dates: start: 200705
  20. TAE BULK 153 (QUERCUS ALBA) [Suspect]
     Active Substance: QUERCUS ALBA POLLEN
     Dosage: UNK
     Dates: start: 200705
  21. STAE BULK 225 [Suspect]
     Active Substance: PHLEUM PRATENSE POLLEN
     Dosage: UNK
     Dates: start: 200705
  22. STAE BULK 223 (LOLIUM PERENNE) [Suspect]
     Active Substance: LOLIUM PERENNE POLLEN
     Dosage: UNK
     Dates: start: 200705
  23. TAE BULK 361 (SALSOLA KALI) [Suspect]
     Active Substance: SALSOLA KALI POLLEN
     Dosage: UNK
     Dates: start: 200705
  24. TAE BULK 1199 (ARTEMISIA TRIDENTATA) [Suspect]
     Active Substance: ARTEMISIA TRIDENTATA POLLEN
     Dosage: UNK
     Dates: start: 200705
  25. STAE BULK 555 (FELIS DOMESTICUS) [Suspect]
     Active Substance: FELIS CATUS HAIR
     Dosage: UNK
     Dates: start: 200705
  26. TAE BULK 165 (CARYA ILLINOINENSIS) [Suspect]
     Active Substance: CARYA ILLINOINENSIS POLLEN
     Dosage: UNK
     Dates: start: 200705
  27. STAE BULK 238 [Suspect]
     Active Substance: CYNODON DACTYLON POLLEN
     Dosage: UNK
     Dates: start: 200705
  28. STAE BULK 243 (AGROSTIS GIGANTEA POLLEN) [Suspect]
     Active Substance: AGROSTIS GIGANTEA POLLEN
     Dosage: UNK
     Dates: start: 200705
  29. TAE BULK 1325 (EPICOCCUM NIGRUM) [Suspect]
     Active Substance: EPICOCCUM NIGRUM
     Dosage: UNK
     Dates: start: 200705
  30. CLARINEX                           /01202601/ [Concomitant]
     Active Substance: LORATADINE\PSEUDOEPHEDRINE SULFATE
  31. TESTOSTERONE. [Concomitant]
     Active Substance: TESTOSTERONE
  32. TAE BULK 304 (AMBROSIA PSILOSTACHYA) [Suspect]
     Active Substance: AMBROSIA PSILOSTACHYA POLLEN
     Dosage: UNK
     Dates: start: 200705
  33. TAE BULK 305 AMBROSIA TRIFIDA [Suspect]
     Active Substance: AMBROSIA TRIFIDA POLLEN
  34. TAE BULK 239 SORGHUM HALEPENSE [Suspect]
     Active Substance: SORGHUM HALEPENSE POLLEN
     Dosage: UNK
     Dates: start: 200705
  35. TAE BULK 1253 (AMARANTHUS PALMERI) [Suspect]
     Active Substance: AMARANTHUS PALMERI POLLEN
     Dosage: UNK
     Dates: start: 200705
  36. TAE BULK 402 [Suspect]
     Active Substance: ALTERNARIA ALTERNATA
  37. DIENOGEST [Concomitant]
     Active Substance: DIENOGEST

REACTIONS (9)
  - Anaphylactic reaction [Recovered/Resolved]
  - Visual impairment [None]
  - Tongue injury [None]
  - Seizure [None]
  - Urinary incontinence [None]
  - Fine motor skill dysfunction [None]
  - Anaphylactic shock [Recovered/Resolved with Sequelae]
  - Endotracheal intubation complication [None]
  - Memory impairment [None]
